FAERS Safety Report 4538072-6 (Version None)
Quarter: 2004Q4

REPORT INFORMATION
  Report Type: 
  Country: None (occurrence: None)
  Receive Date: 20041221
  Receipt Date: 20041213
  Transmission Date: 20050328
  Serious: Yes (Hospitalization, Other)
  Sender: FDA-Public Use
  Company Number: 200415733BCC

PATIENT
  Age: 62 Year
  Sex: Female
  Weight: 90.2658 kg

DRUGS (8)
  1. ORIGINAL ALKA-SELTZER TABLETS [Suspect]
     Indication: DYSPEPSIA
     Dosage: QD, ORAL; BIW, ORAL
     Route: 048
     Dates: end: 20020101
  2. ORIGINAL ALKA-SELTZER TABLETS [Suspect]
     Indication: DYSPEPSIA
     Dosage: QD, ORAL; BIW, ORAL
     Route: 048
     Dates: start: 20020101, end: 20041101
  3. PREVACID [Concomitant]
  4. PROZAC [Concomitant]
  5. LASIX [Concomitant]
  6. IMDUR [Concomitant]
  7. SYNTHROID [Concomitant]
  8. INSULIN [Concomitant]

REACTIONS (8)
  - CELLULITIS [None]
  - FLUID RETENTION [None]
  - HAEMOGLOBIN DECREASED [None]
  - MEDICATION ERROR [None]
  - RECTAL HAEMORRHAGE [None]
  - RENAL DISORDER [None]
  - SEPSIS [None]
  - SPLENOMEGALY [None]
